FAERS Safety Report 24033871 (Version 1)
Quarter: 2024Q3

REPORT INFORMATION
  Report Type: Spontaneous
  Country: US (occurrence: US)
  Receive Date: 20240701
  Receipt Date: 20240701
  Transmission Date: 20241017
  Serious: Yes (Hospitalization)
  Sender: Pyros Pharmaceuticals
  Company Number: US-PYROS PHARMACEUTICALS, INC-2024-PYROS-US000024

PATIENT
  Age: 0 Year
  Sex: Male
  Weight: 8.163 kg

DRUGS (7)
  1. VIGPODER [Suspect]
     Active Substance: VIGABATRIN
     Indication: Infantile spasms
     Dosage: 175 MG, BID FOR 3 DAYS
     Route: 048
     Dates: start: 20240521, end: 20240523
  2. VIGPODER [Suspect]
     Active Substance: VIGABATRIN
     Dosage: 350 MG, BID (STARTED ON DAY 4)
     Route: 048
     Dates: start: 20240524, end: 20240527
  3. VIGPODER [Suspect]
     Active Substance: VIGABATRIN
     Dosage: 500 MG, BID
     Route: 048
     Dates: start: 20240528
  4. ONFI [Concomitant]
     Active Substance: CLOBAZAM
     Indication: Seizure
     Dosage: 2 ML, TID
     Route: 048
     Dates: start: 20240513
  5. ACTH [Concomitant]
     Active Substance: CORTICOTROPIN
     Indication: Seizure
     Dosage: 0.36 ML, BID
     Dates: start: 20240515
  6. KEPPRA [Concomitant]
     Active Substance: LEVETIRACETAM
     Indication: Seizure
     Dosage: 2.5 ML, BID
     Route: 048
     Dates: start: 20240514
  7. VITAMIN D [Concomitant]
     Active Substance: VITAMIN D NOS
     Indication: Product used for unknown indication
     Dosage: UNK, ONCE DAILY
     Route: 048

REACTIONS (3)
  - Drug ineffective [Recovered/Resolved]
  - Respiratory distress [Recovered/Resolved]
  - Insomnia [Not Recovered/Not Resolved]

NARRATIVE: CASE EVENT DATE: 20240501
